FAERS Safety Report 8483364-1 (Version None)
Quarter: 2012Q3

REPORT INFORMATION
  Report Type: 
  Country: None (occurrence: None)
  Receive Date: 20120702
  Receipt Date: 20120618
  Transmission Date: 20120928
  Serious: Yes (Hospitalization, Disabling, Other)
  Sender: FDA-Public Use
  Company Number: US-ENDO PHARMACEUTICALS INC.-OPER20120545

PATIENT
  Sex: Male
  Weight: 74.456 kg

DRUGS (3)
  1. OPANA ER [Suspect]
     Indication: DRUG ABUSE
     Dosage: UNKNOWN
     Dates: start: 20120407
  2. OXYCODONE HCL [Suspect]
     Indication: DRUG ABUSE
     Dosage: UNKNOWN
     Route: 048
  3. MS CONTIN [Suspect]
     Indication: DRUG ABUSE
     Dosage: UNKNOWN
     Route: 065

REACTIONS (3)
  - EXTREMITY NECROSIS [None]
  - PERIPHERAL ISCHAEMIA [None]
  - DRUG ABUSE [None]
